FAERS Safety Report 6687915-9 (Version None)
Quarter: 2010Q2

REPORT INFORMATION
  Report Type: 
  Country: None (occurrence: None)
  Receive Date: 20100420
  Receipt Date: 20100408
  Transmission Date: 20101027
  Serious: Yes (Hospitalization, Other)
  Sender: FDA-Public Use
  Company Number: US-JNJFOC-20100105496

PATIENT
  Sex: Male
  Weight: 78.93 kg

DRUGS (2)
  1. LEVAQUIN [Suspect]
     Indication: URINARY TRACT INFECTION
     Route: 048
  2. LEVAQUIN [Suspect]
     Indication: SINUSITIS
     Route: 048

REACTIONS (3)
  - MAJOR DEPRESSION [None]
  - PLANTAR FASCIITIS [None]
  - TENDON RUPTURE [None]
